FAERS Safety Report 20124397 (Version 1)
Quarter: 2021Q4

REPORT INFORMATION
  Report Type: Spontaneous
  Country: US (occurrence: US)
  Receive Date: 20211129
  Receipt Date: 20211129
  Transmission Date: 20220303
  Serious: Yes (Other)
  Sender: FDA-Public Use
  Company Number: US-TEVA-2021-US-1980106

PATIENT
  Age: 57 Year
  Sex: Male

DRUGS (1)
  1. COPAXONE [Suspect]
     Active Substance: GLATIRAMER ACETATE
     Indication: Multiple sclerosis
     Route: 065

REACTIONS (6)
  - Brain injury [Unknown]
  - Myocardial infarction [Unknown]
  - SARS-CoV-2 test positive [Unknown]
  - Pain [Unknown]
  - Memory impairment [Unknown]
  - Sinusitis [Unknown]

NARRATIVE: CASE EVENT DATE: 20211115
